FAERS Safety Report 7302329-6 (Version None)
Quarter: 2011Q1

REPORT INFORMATION
  Report Type: 
  Country: None (occurrence: None)
  Receive Date: 20110218
  Receipt Date: 20110209
  Transmission Date: 20110831
  Serious: Yes (Hospitalization, Other)
  Sender: FDA-Public Use
  Company Number: PHEH2007US12178

PATIENT
  Sex: Male
  Weight: 78.912 kg

DRUGS (92)
  1. ASTRAMORPH PF [Concomitant]
  2. ZANAFLEX [Concomitant]
  3. DULCOLAX [Concomitant]
  4. SENOKOT                                 /UNK/ [Concomitant]
  5. AMBIEN [Concomitant]
  6. FLEXERIL [Concomitant]
  7. PREDNISONE [Concomitant]
  8. ATIVAN [Concomitant]
  9. ZOFRAN [Concomitant]
  10. ZOMETA [Suspect]
     Indication: MULTIPLE MYELOMA
     Dosage: 4 MG
     Route: 042
     Dates: start: 20050315, end: 20070601
  11. ALKERAN [Suspect]
  12. INSULIN HUMAN [Concomitant]
  13. LACTULOSE [Concomitant]
  14. COLACE [Concomitant]
  15. ZANTAC [Concomitant]
  16. B-COMPLEX ^KRKA^ [Concomitant]
  17. ATENOLOL [Concomitant]
  18. ACTOS [Concomitant]
     Dosage: 15 / QD
  19. ACETAMINOPHEN AND HYDROCODONE BITARTRATE [Concomitant]
  20. FENTANYL [Concomitant]
  21. NOVOLOG [Concomitant]
  22. METHADONE [Concomitant]
  23. CATHFLO ACTIVASE [Concomitant]
  24. MICRO-K [Concomitant]
     Dosage: UNK
  25. OXYCONTIN [Concomitant]
     Dosage: 20 MG / EVERY 12 HRS
     Dates: start: 20040409
  26. MULTIVITAMIN [Concomitant]
  27. MS CONTIN [Concomitant]
  28. ZESTRIL [Concomitant]
  29. TENORMIN [Concomitant]
  30. TIZANIDINE [Concomitant]
  31. PIOGLITAZONE [Concomitant]
  32. DEXAMETHASONE [Concomitant]
     Dosage: 4 / Q12
     Dates: start: 20040519
  33. ENALAPRIL [Concomitant]
  34. AMOXICILLIN [Concomitant]
  35. DIFLUCAN [Concomitant]
  36. BENADRYL ^ACHE^ [Concomitant]
  37. MAALOX                                  /NET/ [Concomitant]
  38. GLIPIZIDE [Concomitant]
  39. NEURONTIN [Concomitant]
  40. REGLAN [Concomitant]
  41. CENTRUM SILVER [Concomitant]
  42. ACTIQ [Concomitant]
  43. CHEMOTHERAPEUTICS NOS [Concomitant]
  44. BACLOFEN [Concomitant]
  45. THALIDOMIDE [Concomitant]
     Dosage: 200
     Dates: start: 20040617
  46. PEPCID [Concomitant]
  47. DILAUDID [Concomitant]
  48. FLUTICASONE PROPIONATE [Concomitant]
  49. BACTRIM [Concomitant]
  50. LEVAQUIN [Concomitant]
  51. TYLENOL [Concomitant]
  52. ALLOPURINOL [Concomitant]
  53. GLUCOPHAGE [Concomitant]
  54. PERCOCET [Concomitant]
     Dosage: 10/500 / PRN
  55. DURAMORPH PF [Concomitant]
  56. MIRALAX [Concomitant]
  57. MORPHINE [Concomitant]
  58. LISINOPRIL [Concomitant]
  59. RIMANTADINE HYDROCHLORIDE [Concomitant]
  60. FLUOXETINE [Concomitant]
  61. GABAPENTIN [Concomitant]
  62. CHLORHEXIDINE GLUCONATE [Concomitant]
  63. NAPROXEN [Concomitant]
  64. DURAGESIC-50 [Concomitant]
     Dosage: UNK
     Dates: end: 20040519
  65. LANTUS [Concomitant]
  66. NPH INSULIN [Concomitant]
  67. INSULIN GLARGINE [Concomitant]
  68. ACYCLOVIR [Concomitant]
  69. MIRTAZAPINE [Concomitant]
  70. PRILOSEC [Concomitant]
  71. GLYBURIDE [Concomitant]
  72. DEXAMETHASONE [Concomitant]
     Dosage: 4 / Q6
     Dates: end: 20040519
  73. ROXANOL [Concomitant]
     Dosage: UNK
  74. SULFAMETHOXAZOLE AND TRIMETHOPRIM [Concomitant]
  75. PRAVASTATIN [Concomitant]
  76. LOVAZA [Concomitant]
  77. PENICILLIN ^GRUNENTHAL^ [Concomitant]
  78. CALCIUM CARBONATE W/VITAMIN D NOS [Concomitant]
  79. RADIOTHERAPY [Concomitant]
     Dosage: UNK
     Dates: start: 20040419, end: 20040501
  80. DURAGESIC-50 [Concomitant]
     Dosage: 200
     Dates: start: 20040519
  81. LIORESAL [Concomitant]
  82. SENNA [Concomitant]
  83. LIDODERM [Concomitant]
  84. RADIATION THERAPY [Concomitant]
  85. MSIR [Concomitant]
  86. PROTONIX [Concomitant]
  87. LOVENOX [Concomitant]
  88. METFORMIN [Concomitant]
     Dosage: 1500 / BID
  89. FLAGYL ^RHONE-POULENC RORER^ [Concomitant]
  90. LOPERAMIDE [Concomitant]
  91. MAXIPIME [Concomitant]
  92. MAGNESIUM SULFATE [Concomitant]

REACTIONS (44)
  - SCROTAL IRRITATION [None]
  - INFECTION [None]
  - PAIN [None]
  - HYPOPHAGIA [None]
  - MYELITIS TRANSVERSE [None]
  - ARTHRALGIA [None]
  - INGUINAL HERNIA [None]
  - WHITE BLOOD CELL COUNT DECREASED [None]
  - DEPRESSION [None]
  - NEURALGIA [None]
  - DEFORMITY [None]
  - EMOTIONAL DISTRESS [None]
  - ANXIETY [None]
  - ANHEDONIA [None]
  - MUCOSAL INFLAMMATION [None]
  - OSTEOPOROSIS [None]
  - SPINAL COLUMN STENOSIS [None]
  - LIGHT CHAIN ANALYSIS INCREASED [None]
  - OSTEOARTHRITIS [None]
  - OSTEONECROSIS OF JAW [None]
  - PLEURAL FIBROSIS [None]
  - POST LAMINECTOMY SYNDROME [None]
  - NEUTROPHIL COUNT DECREASED [None]
  - NEOPLASM MALIGNANT [None]
  - GLAUCOMA [None]
  - INJURY [None]
  - SCIATICA [None]
  - DECREASED APPETITE [None]
  - MYOFASCIAL PAIN SYNDROME [None]
  - HAEMATOCHEZIA [None]
  - INTERVERTEBRAL DISC PROTRUSION [None]
  - FATIGUE [None]
  - DISCOMFORT [None]
  - ARTHROPATHY [None]
  - SPONDYLITIS [None]
  - FAILURE TO THRIVE [None]
  - RASH PRURITIC [None]
  - EXOSTOSIS [None]
  - COUGH [None]
  - LIFE EXPECTANCY SHORTENED [None]
  - PROSTATE CANCER [None]
  - RENAL FAILURE [None]
  - DYSURIA [None]
  - INTERVERTEBRAL DISC DEGENERATION [None]
